FAERS Safety Report 8544965-5 (Version None)
Quarter: 2012Q3

REPORT INFORMATION
  Report Type: 
  Country: None (occurrence: None)
  Receive Date: 20120727
  Receipt Date: 20120718
  Transmission Date: 20120928
  Serious: Yes (Hospitalization)
  Sender: FDA-Public Use
  Company Number: JP-VERTEX PHARMACEUTICALS INC.-AE-2012-009785

PATIENT
  Age: 56 Year
  Sex: Male

DRUGS (19)
  1. PREDNISOLONE [Concomitant]
     Route: 048
     Dates: start: 20120505, end: 20120509
  2. TELAVIC (TELAPREVIR) [Suspect]
     Indication: HEPATITIS C
     Route: 048
     Dates: start: 20120314, end: 20120427
  3. REBETOL [Concomitant]
     Route: 048
     Dates: start: 20120516
  4. ASPIRIN [Concomitant]
     Route: 048
  5. CELEBREX [Concomitant]
     Route: 048
     Dates: start: 20120425, end: 20120427
  6. REBETOL [Concomitant]
     Route: 048
     Dates: start: 20120328, end: 20120509
  7. PEG-INTRON [Concomitant]
     Indication: HEPATITIS C
     Route: 058
     Dates: start: 20120314
  8. MAGMITT [Concomitant]
     Route: 048
  9. ACETAMINOPHEN [Concomitant]
     Route: 048
     Dates: start: 20120404
  10. PREDNISOLONE [Concomitant]
     Route: 048
     Dates: start: 20120523, end: 20120529
  11. REBETOL [Concomitant]
     Route: 048
     Dates: start: 20120510, end: 20120515
  12. PREDNISOLONE [Concomitant]
     Indication: ADVERSE EVENT
     Route: 048
     Dates: start: 20120428, end: 20120504
  13. PREDNISOLONE [Concomitant]
     Route: 048
     Dates: start: 20120516, end: 20120522
  14. REBETOL [Concomitant]
     Indication: HEPATITIS C
     Route: 048
     Dates: start: 20120314, end: 20120327
  15. TALION [Concomitant]
     Route: 048
  16. PREDNISOLONE [Concomitant]
     Route: 048
     Dates: start: 20120510, end: 20120515
  17. LOXONIN [Concomitant]
     Route: 048
     Dates: start: 20120314, end: 20120330
  18. CANDESARTAN CILEXETIL [Concomitant]
     Route: 048
  19. SITAGLIPTIN PHOSPHATE [Concomitant]
     Route: 048
     Dates: start: 20120502

REACTIONS (1)
  - ERYTHEMA [None]
